FAERS Safety Report 23193814 (Version 2)
Quarter: 2024Q1

REPORT INFORMATION
  Report Type: Spontaneous
  Country: GB (occurrence: GB)
  Receive Date: 20231116
  Receipt Date: 20240306
  Transmission Date: 20240410
  Serious: Yes (Hospitalization, Other)
  Sender: FDA-Public Use
  Company Number: GB-ELI_LILLY_AND_COMPANY-GB202311008341

PATIENT
  Age: 33 Year
  Sex: Female

DRUGS (3)
  1. HUMALOG [Suspect]
     Active Substance: INSULIN LISPRO
     Indication: Gestational diabetes
     Dosage: THREE TIMES A DAY WITH MEALS
     Route: 065
  2. HUMULIN R [Suspect]
     Active Substance: INSULIN HUMAN
     Indication: Gestational diabetes
     Dosage: 54 INTERNATIONAL UNIT, BID
     Route: 065
  3. METFORMIN [Suspect]
     Active Substance: METFORMIN HYDROCHLORIDE
     Indication: Gestational diabetes
     Dosage: 1 G, BID
     Route: 065

REACTIONS (5)
  - Hypoglycaemia [Unknown]
  - Blood insulin increased [Recovering/Resolving]
  - Insulin C-peptide decreased [Unknown]
  - Insulin autoimmune syndrome [Unknown]
  - Maternal exposure during pregnancy [Unknown]
